FAERS Safety Report 4348767-5 (Version None)
Quarter: 2004Q1

REPORT INFORMATION
  Report Type: 
  Country: None (occurrence: None)
  Receive Date: 20040325
  Receipt Date: 20040113
  Transmission Date: 20041129
  Serious: No
  Sender: FDA-Public Use
  Company Number: USA040156532

PATIENT
  Age: 52 Year
  Sex: Female

DRUGS (3)
  1. FORTEO [Suspect]
     Indication: OSTEOPOROSIS
     Dates: start: 20031218, end: 20031229
  2. MOBIC [Concomitant]
  3. INDERAL [Concomitant]

REACTIONS (1)
  - ABDOMINAL PAIN UPPER [None]
